FAERS Safety Report 9454512 (Version 1)
Quarter: 2013Q3

REPORT INFORMATION
  Report Type: Spontaneous
  Country: DE (occurrence: DE)
  Receive Date: 20130812
  Receipt Date: 20130812
  Transmission Date: 20140515
  Serious: Yes (Death, Hospitalization, Other)
  Sender: FDA-Public Use
  Company Number: DE-ALEXION PHARMACEUTICALS INC.-A201301876

PATIENT
  Age: 4 Month
  Sex: Male

DRUGS (1)
  1. SOLIRIS 300MG [Suspect]
     Indication: HAEMOLYTIC URAEMIC SYNDROME
     Dosage: 300 MG, SINGLE
     Route: 042
     Dates: start: 20130725

REACTIONS (3)
  - Sepsis [Fatal]
  - Brain death [Unknown]
  - Diarrhoea [Unknown]
